FAERS Safety Report 17988659 (Version 5)
Quarter: 2021Q1

REPORT INFORMATION
  Report Type: Spontaneous
  Country: US (occurrence: US)
  Receive Date: 20200707
  Receipt Date: 20210329
  Transmission Date: 20210419
  Serious: Yes (Other)
  Sender: FDA-Public Use
  Company Number: US-PFIZER INC-2020259828

PATIENT
  Age: 64 Year
  Sex: Female

DRUGS (2)
  1. XELJANZ [Suspect]
     Active Substance: TOFACITINIB CITRATE
     Dosage: 5 MG
  2. XELJANZ [Suspect]
     Active Substance: TOFACITINIB CITRATE
     Dosage: 5 MG, 1X/DAY
     Dates: start: 202103

REACTIONS (11)
  - Bursitis [Unknown]
  - Musculoskeletal discomfort [Unknown]
  - Sensitivity to weather change [Unknown]
  - Joint stiffness [Unknown]
  - Tooth abscess [Unknown]
  - Renal disorder [Unknown]
  - Inflammation [Unknown]
  - Mobility decreased [Not Recovered/Not Resolved]
  - Pain [Unknown]
  - Tendon rupture [Unknown]
  - Product dose omission issue [Unknown]

NARRATIVE: CASE EVENT DATE: 2020
